FAERS Safety Report 5302449-1 (Version None)
Quarter: 2007Q2

REPORT INFORMATION
  Report Type: 
  Country: None (occurrence: None)
  Receive Date: 20070413
  Receipt Date: 20070329
  Transmission Date: 20071010
  Serious: Yes (Other)
  Sender: FDA-Public Use
  Company Number: 2007SP006255

PATIENT
  Age: 60 Year
  Sex: Female

DRUGS (4)
  1. PEG-INTRON [Suspect]
     Indication: DISEASE RECURRENCE
     Dosage: 1 MCG/KG; QW;
  2. PEG-INTRON [Suspect]
     Indication: HEPATITIS C
     Dosage: 1 MCG/KG; QW;
  3. REBETOL [Suspect]
     Indication: DISEASE RECURRENCE
  4. REBETOL [Suspect]
     Indication: HEPATITIS C

REACTIONS (4)
  - AUTOIMMUNE HEPATITIS [None]
  - BILE DUCT STENOSIS [None]
  - COMPLICATIONS OF TRANSPLANTED LIVER [None]
  - HEPATIC ARTERY STENOSIS [None]
